FAERS Safety Report 7033996-2 (Version None)
Quarter: 2010Q4

REPORT INFORMATION
  Report Type: 
  Country: None (occurrence: None)
  Receive Date: 20101006
  Receipt Date: 20100922
  Transmission Date: 20110411
  Serious: Yes (Hospitalization)
  Sender: FDA-Public Use
  Company Number: 018932

PATIENT
  Sex: Female

DRUGS (9)
  1. CERTOLIZUMAB PEGOL (CERTOLIZUMAB PEGOL) [Suspect]
     Indication: RHEUMATOID ARTHRITIS
     Dosage: STUDY: RA0006; CDP870 OR PLACEBO, 200 MG 1X/2 WEEKS SUBCUTANEOUS
     Route: 058
     Dates: start: 20100121
  2. CERTOLIZUMAB PEGOL (CERTOLIZUMAB PEGOL) [Suspect]
     Indication: RHEUMATOID ARTHRITIS
     Dosage: STUDY: RA0006; CDP870 OR PLACEBO, 200 MG 1X/2 WEEKS SUBCUTANEOUS
     Route: 058
     Dates: start: 20100513
  3. CLARITHROMYCIN [Concomitant]
  4. CARBOCISTEINE [Concomitant]
  5. AZULENE SODIUM SULFONATE [Concomitant]
  6. BUCILLAMINE [Concomitant]
  7. FELBINAC [Concomitant]
  8. KETOPROFEN [Concomitant]
  9. LIRANAFTATE [Concomitant]

REACTIONS (8)
  - COMPRESSION FRACTURE [None]
  - LUMBAR VERTEBRAL FRACTURE [None]
  - LYMPHOEDEMA [None]
  - OEDEMA PERIPHERAL [None]
  - PAIN IN EXTREMITY [None]
  - PERICARDIAL EFFUSION [None]
  - PLEURAL EFFUSION [None]
  - TINEA PEDIS [None]
